FAERS Safety Report 21657870 (Version 2)
Quarter: 2023Q1

REPORT INFORMATION
  Report Type: Spontaneous
  Country: US (occurrence: US)
  Receive Date: 20221129
  Receipt Date: 20230117
  Transmission Date: 20230418
  Serious: No
  Sender: FDA-Public Use
  Company Number: US-GALDERMA-US2022015957

PATIENT

DRUGS (9)
  1. PROACTIV MD ADAPALENE ACNE TREATMENT [Suspect]
     Active Substance: ADAPALENE
     Indication: Scar
     Dosage: 1 DOSAGE FORM, QD
     Route: 061
     Dates: start: 2022, end: 2022
  2. PROACTIV MD ADAPALENE ACNE TREATMENT [Suspect]
     Active Substance: ADAPALENE
     Indication: Skin hyperpigmentation
  3. Proactiv MD Ultra Gentle Cleanser [Concomitant]
     Indication: Scar
     Dosage: 1 DOSAGE FORM, QD
     Route: 061
     Dates: start: 2022, end: 2022
  4. Proactiv MD Ultra Gentle Cleanser [Concomitant]
     Indication: Skin hyperpigmentation
  5. PROACTIV EXTRA STRENGTH FORMULA TREATMENT [Concomitant]
     Active Substance: BENZOYL PEROXIDE
     Indication: Scar
     Dosage: 1 DOSAGE FORM, QD
     Route: 061
     Dates: start: 2022, end: 2022
  6. PROACTIV EXTRA STRENGTH FORMULA TREATMENT [Concomitant]
     Active Substance: BENZOYL PEROXIDE
     Indication: Skin hyperpigmentation
  7. VITAMINS [Concomitant]
     Active Substance: VITAMINS
     Indication: Product used for unknown indication
     Route: 065
  8. MAGNESIUM [Concomitant]
     Active Substance: MAGNESIUM
     Indication: Product used for unknown indication
     Route: 065
  9. VITAMIN D NOS [Concomitant]
     Active Substance: VITAMIN D NOS
     Indication: Product used for unknown indication
     Route: 065

REACTIONS (2)
  - Acne [Recovered/Resolved]
  - Product use in unapproved indication [Recovered/Resolved]

NARRATIVE: CASE EVENT DATE: 20220101
